FAERS Safety Report 26154244 (Version 1)
Quarter: 2025Q4

REPORT INFORMATION
  Report Type: Spontaneous
  Country: US (occurrence: US)
  Receive Date: 20251215
  Receipt Date: 20251215
  Transmission Date: 20260117
  Serious: Yes (Other)
  Sender: BRISTOL-MYERS SQUIBB COMPANY
  Company Number: US-BRISTOL-MYERS SQUIBB COMPANY-2025-167321

PATIENT
  Age: 75 Year
  Sex: Male
  Weight: 92.53 kg

DRUGS (9)
  1. POMALYST [Suspect]
     Active Substance: POMALIDOMIDE
     Indication: Plasma cell myeloma
     Dosage: TAKE 1 CAPSULE BY MOUTH DAILY FOR 21 DAYS ON AND 7 DAYS OFF
     Route: 048
     Dates: start: 20251120
  2. POMALYST [Suspect]
     Active Substance: POMALIDOMIDE
     Route: 048
  3. ACYCLOVIR (ZOVIRAX) [Concomitant]
     Indication: Product used for unknown indication
  4. ASPIRIN [Concomitant]
     Active Substance: ASPIRIN
     Indication: Product used for unknown indication
  5. LIPITOR [Concomitant]
     Active Substance: ATORVASTATIN CALCIUM
     Indication: Product used for unknown indication
  6. COREG [Concomitant]
     Active Substance: CARVEDILOL
     Indication: Product used for unknown indication
  7. FOLIC ACID (FOLVITE) [Concomitant]
     Indication: Product used for unknown indication
  8. MULTIPLE VITAMIN (DAILY-VITE) [Concomitant]
     Indication: Product used for unknown indication
  9. NIFEDIPINE XL (PROCARDIA XL) [Concomitant]
     Indication: Product used for unknown indication

REACTIONS (1)
  - Neutropenia [Unknown]

NARRATIVE: CASE EVENT DATE: 20251120
